FAERS Safety Report 4524474-0 (Version None)
Quarter: 2004Q4

REPORT INFORMATION
  Report Type: 
  Country: None (occurrence: None)
  Receive Date: 20041117
  Receipt Date: 20040525
  Transmission Date: 20050328
  Serious: Yes (Hospitalization)
  Sender: FDA-Public Use
  Company Number: US-JNJFOC-20030906287

PATIENT
  Age: 71 Year
  Sex: Female
  Weight: 54.4316 kg

DRUGS (7)
  1. LEVAQUIN [Suspect]
     Indication: SINUSITIS
     Dosage: 500 MG, ORAL
     Route: 048
     Dates: start: 20030907, end: 20030914
  2. PREDNISONE [Concomitant]
  3. SYNTHROID [Concomitant]
  4. CALTRATE (CALCIUM CARBONATE) [Concomitant]
  5. VICODIN [Concomitant]
  6. FOSAMAX [Concomitant]
  7. SEREVENT [Concomitant]

REACTIONS (2)
  - TENDON RUPTURE [None]
  - TENDONITIS [None]
